FAERS Safety Report 6890376-8 (Version None)
Quarter: 2010Q3

REPORT INFORMATION
  Report Type: 
  Country: None (occurrence: None)
  Receive Date: 20100730
  Receipt Date: 20081014
  Transmission Date: 20110219
  Serious: No
  Sender: FDA-Public Use
  Company Number: US-PFIZER INC-2008086677

PATIENT
  Sex: Female
  Weight: 66.363 kg

DRUGS (2)
  1. LIPITOR [Suspect]
     Indication: BLOOD CHOLESTEROL INCREASED
     Dates: end: 20080101
  2. GRAPEFRUIT JUICE [Interacting]

REACTIONS (4)
  - ASTHENIA [None]
  - FEELING ABNORMAL [None]
  - LABELLED DRUG-DRUG INTERACTION MEDICATION ERROR [None]
  - MYALGIA [None]
